FAERS Safety Report 13807402 (Version 5)
Quarter: 2017Q4

REPORT INFORMATION
  Report Type: Spontaneous
  Country: US (occurrence: US)
  Receive Date: 20170728
  Receipt Date: 20171010
  Transmission Date: 20180320
  Serious: Yes (Death, Other)
  Sender: FDA-Public Use
  Company Number: US-ACORDA-ACO_140489_2017

PATIENT
  Sex: Female

DRUGS (4)
  1. OCRELIZUMAB. [Concomitant]
     Active Substance: OCRELIZUMAB
     Indication: MULTIPLE SCLEROSIS
     Dosage: 300 MG, ONCE
     Route: 042
     Dates: start: 20170508
  2. TYSABRI [Suspect]
     Active Substance: NATALIZUMAB
     Indication: MULTIPLE SCLEROSIS
     Dosage: 300 MG, EVERY 28 DAYS
     Route: 042
     Dates: start: 20061211, end: 20120913
  3. AMPYRA [Suspect]
     Active Substance: DALFAMPRIDINE
     Indication: PRODUCT USED FOR UNKNOWN INDICATION
     Dosage: 10 MG, BID
     Route: 048
  4. TYSABRI [Suspect]
     Active Substance: NATALIZUMAB
     Dosage: 300 MG, EVERY 28 DAYS
     Route: 042
     Dates: start: 20131212, end: 20170316

REACTIONS (7)
  - Cerebral haematoma [Unknown]
  - Brain oedema [Fatal]
  - Brain herniation [Fatal]
  - Seizure [Fatal]
  - Cerebral haemorrhage [Fatal]
  - Encephalopathy [Fatal]
  - Encephalitis viral [Unknown]
